FAERS Safety Report 12795434 (Version 1)
Quarter: 2016Q3

REPORT INFORMATION
  Report Type: Spontaneous
  Country: US (occurrence: US)
  Receive Date: 20160929
  Receipt Date: 20160929
  Transmission Date: 20161109
  Serious: No
  Sender: FDA-Public Use
  Company Number: US-HORIZON-ACT-0227-2016

PATIENT
  Age: 3 Year
  Sex: Male

DRUGS (1)
  1. ACTIMMUNE [Suspect]
     Active Substance: INTERFERON GAMMA-1B
     Indication: PRODUCT USED FOR UNKNOWN INDICATION
     Dosage: 20 ?G TIW
     Dates: start: 2014

REACTIONS (4)
  - Injection site swelling [Recovering/Resolving]
  - Lack of injection site rotation [Unknown]
  - Injection site erythema [Recovering/Resolving]
  - Injection site warmth [Recovering/Resolving]
